FAERS Safety Report 10402387 (Version 1)
Quarter: 2014Q3

REPORT INFORMATION
  Report Type: Spontaneous
  Country: US (occurrence: None)
  Receive Date: 20140820
  Receipt Date: 20140820
  Transmission Date: 20150326
  Serious: No
  Sender: FDA-Public Use
  Company Number: None

PATIENT
  Age: 38 Year
  Sex: Female
  Weight: 70.31 kg

DRUGS (2)
  1. MULTIHANCE [Concomitant]
     Active Substance: GADOBENATE DIMEGLUMINE
  2. OMNISCAN [Suspect]
     Active Substance: GADODIAMIDE
     Dosage: 6 EXAMS/75 MONTHS
     Route: 042

REACTIONS (1)
  - Cerebral disorder [None]

NARRATIVE: CASE EVENT DATE: 20140812
